FAERS Safety Report 21075264 (Version 2)
Quarter: 2024Q2

REPORT INFORMATION
  Report Type: Report from Study
  Country: US (occurrence: US)
  Receive Date: 20220713
  Receipt Date: 20240415
  Transmission Date: 20240716
  Serious: Yes (Hospitalization, Other)
  Sender: FDA-Public Use
  Company Number: US-EXELIXIS-CABO-22053827

PATIENT
  Sex: Male

DRUGS (17)
  1. CABOMETYX [Suspect]
     Active Substance: CABOZANTINIB S-MALATE
     Indication: Renal cell carcinoma
     Dosage: 40 MG, QD
     Route: 048
     Dates: start: 20210817
  2. CABOMETYX [Suspect]
     Active Substance: CABOZANTINIB S-MALATE
     Dosage: 20 MG
     Route: 048
  3. CABOMETYX [Suspect]
     Active Substance: CABOZANTINIB S-MALATE
     Dosage: 40 MG, QD
     Route: 048
  4. CABOMETYX [Suspect]
     Active Substance: CABOZANTINIB S-MALATE
     Dosage: 20 MG, QD
     Dates: start: 20240320
  5. OPDIVO [Suspect]
     Active Substance: NIVOLUMAB
     Indication: Renal cell carcinoma
     Dosage: UNK, Q4 MONTH
     Dates: start: 20210817
  6. ACETAMINOPHEN [Concomitant]
     Active Substance: ACETAMINOPHEN
  7. CHG MOUTH RINSE [Concomitant]
  8. ENOXAPARIN [Concomitant]
     Active Substance: ENOXAPARIN
  9. LIPITOR [Concomitant]
     Active Substance: ATORVASTATIN CALCIUM
  10. METOPROLOL TARTRATE [Concomitant]
     Active Substance: METOPROLOL TARTRATE
  11. VITAMINS [Concomitant]
     Active Substance: VITAMINS
  12. FISH OIL\OMEGA-3 FATTY ACIDS [Concomitant]
     Active Substance: FISH OIL\OMEGA-3 FATTY ACIDS
  13. CURCUMIN [Concomitant]
     Active Substance: CURCUMIN
  14. REISHI [Concomitant]
     Active Substance: REISHI
  15. Turkey tail [Concomitant]
  16. DIETARY SUPPLEMENT\TAUROURSODEOXYCHOLIC ACID [Concomitant]
     Active Substance: DIETARY SUPPLEMENT\TAUROURSODEOXYCHOLIC ACID
  17. VIAGRA [Concomitant]
     Active Substance: SILDENAFIL CITRATE

REACTIONS (7)
  - Infected skin ulcer [Not Recovered/Not Resolved]
  - Road traffic accident [Not Recovered/Not Resolved]
  - Limb injury [Not Recovered/Not Resolved]
  - Skin ulcer [Recovering/Resolving]
  - Illness [Not Recovered/Not Resolved]
  - Impaired healing [Unknown]
  - Metastases to liver [Not Recovered/Not Resolved]
